FAERS Safety Report 5029453-5 (Version None)
Quarter: 2006Q2

REPORT INFORMATION
  Report Type: 
  Country: None (occurrence: None)
  Receive Date: 20060503
  Receipt Date: 20060306
  Transmission Date: 20061013
  Serious: No
  Sender: FDA-Public Use
  Company Number: FACT0600142

PATIENT
  Age: 26 Year
  Sex: Female
  Weight: 145.1 kg

DRUGS (3)
  1. FACTIVE [Suspect]
     Indication: RESPIRATORY TRACT INFECTION BACTERIAL
     Dosage: 320 MG, QD, ORAL
     Route: 048
     Dates: start: 20060221, end: 20060223
  2. FLONASE [Suspect]
     Indication: SINUSITIS
     Dates: start: 20060221, end: 20060223
  3. OMEPRAZOLE [Suspect]
     Indication: GASTROOESOPHAGEAL REFLUX DISEASE
     Dates: start: 20060221, end: 20060223

REACTIONS (2)
  - ABDOMINAL PAIN UPPER [None]
  - RASH PRURITIC [None]
